FAERS Safety Report 18677339 (Version 12)
Quarter: 2021Q3

REPORT INFORMATION
  Report Type: Report from Study
  Country: CN (occurrence: CN)
  Receive Date: 20201229
  Receipt Date: 20210728
  Transmission Date: 20211014
  Serious: Yes (Death, Hospitalization)
  Sender: FDA-Public Use
  Company Number: CN-ROCHE-2740327

PATIENT
  Age: 72 Year
  Sex: Male
  Weight: 65 kg

DRUGS (73)
  1. DOMPERIDONE [Concomitant]
     Active Substance: DOMPERIDONE
     Indication: HICCUPS
     Dates: start: 20201202, end: 20201202
  2. PALONOSETRON HYDROCHLORIDE. [Concomitant]
     Active Substance: PALONOSETRON HYDROCHLORIDE
     Dates: start: 20201110, end: 20201110
  3. DEXAMETHASONE ACETATE [Concomitant]
     Active Substance: DEXAMETHASONE ACETATE
     Route: 048
     Dates: start: 20201201, end: 20201203
  4. DEXAMETHASONE ACETATE [Concomitant]
     Active Substance: DEXAMETHASONE ACETATE
     Route: 048
     Dates: start: 20201109, end: 20201111
  5. PROMETHAZINE HYDROCHLORIDE. [Concomitant]
     Active Substance: PROMETHAZINE HYDROCHLORIDE
     Indication: ANAPHYLACTIC REACTION
     Dates: start: 20201210, end: 20201210
  6. CEFOPERAZONE SODIUM;SULBACTAM SODIUM [Concomitant]
     Active Substance: CEFOPERAZONE SODIUM\SULBACTAM SODIUM
     Indication: INFECTION
     Dates: start: 20201210, end: 20201213
  7. POTASSIUM CHLORIDE. [Concomitant]
     Active Substance: POTASSIUM CHLORIDE
     Indication: SUPPLEMENTATION THERAPY
     Dates: start: 20201210, end: 20201211
  8. VITAMIN C [Concomitant]
     Active Substance: ASCORBIC ACID
     Indication: HYPOKALAEMIA
     Dates: start: 20201210, end: 20201213
  9. FERROUS SUCCINATE [Concomitant]
     Active Substance: FERROUS SUCCINATE
     Indication: ANAEMIA
     Dates: start: 20201217, end: 20201223
  10. PLACEBO [Suspect]
     Active Substance: UNSPECIFIED INGREDIENT
     Indication: NON-SMALL CELL LUNG CANCER STAGE IV
     Dosage: THE START DATE OF MOST RECENT DOSE OF BLINDED ATEZOLIZUMAB PRIOR TO SAE (SERIOUS ADVERSE EVENT) ONSE
     Route: 042
     Dates: start: 20201110
  11. DOMPERIDONE [Concomitant]
     Active Substance: DOMPERIDONE
     Dates: start: 20201110, end: 20201110
  12. DOMPERIDONE [Concomitant]
     Active Substance: DOMPERIDONE
     Dates: start: 20201217, end: 20201221
  13. LANSOPRAZOLE. [Concomitant]
     Active Substance: LANSOPRAZOLE
     Dates: start: 20201214, end: 20201223
  14. BUDESONIDE. [Concomitant]
     Active Substance: BUDESONIDE
     Indication: PRODUCTIVE COUGH
     Dosage: INHALANT
     Route: 048
     Dates: start: 20201212, end: 20201213
  15. FILGRASTIM [Concomitant]
     Active Substance: FILGRASTIM
     Dates: start: 20201214, end: 20201214
  16. VITAMIN C [Concomitant]
     Active Substance: ASCORBIC ACID
     Dates: start: 20201222, end: 20201222
  17. DEXTROSE. [Concomitant]
     Active Substance: DEXTROSE
     Indication: HYPERCHLORAEMIA
     Dates: start: 20201217, end: 20201217
  18. ERYTHROPOIETIN [Concomitant]
     Active Substance: ERYTHROPOIETIN
     Indication: ANAEMIA
     Dates: start: 20201217, end: 20201217
  19. ERYTHROPOIETIN [Concomitant]
     Active Substance: ERYTHROPOIETIN
     Dates: start: 20201221, end: 20201221
  20. AMIKACIN SULFATE. [Concomitant]
     Active Substance: AMIKACIN SULFATE
     Indication: INFECTION
     Dates: start: 20201210, end: 20201211
  21. SULPERAZONE [Concomitant]
     Active Substance: CEFOPERAZONE SODIUM\SULBACTAM SODIUM
     Indication: INFECTION
     Dates: start: 20201214, end: 20201215
  22. POTASSIUM CHLORIDE. [Concomitant]
     Active Substance: POTASSIUM CHLORIDE
     Dates: start: 20201222, end: 20201222
  23. VITAMIN B6 [Concomitant]
     Active Substance: PYRIDOXINE HYDROCHLORIDE
     Indication: SUPPLEMENTATION THERAPY
     Dates: start: 20201210, end: 20201213
  24. FILGRASTIM [Concomitant]
     Active Substance: FILGRASTIM
     Indication: NEUTROPHIL COUNT DECREASED
     Dates: start: 20201203, end: 20201203
  25. FILGRASTIM [Concomitant]
     Active Substance: FILGRASTIM
     Dosage: PREVENT LEUKOPENIA AND DECREASE NEUTROPHILS COUNT
     Dates: start: 20201215, end: 20201215
  26. LIDOCAINE HYDROCHLORIDE. [Concomitant]
     Active Substance: LIDOCAINE HYDROCHLORIDE
     Indication: OROPHARYNGEAL PAIN
     Dates: start: 20201215, end: 20201215
  27. HUMAN ALBUMIN [Concomitant]
     Active Substance: ALBUMIN HUMAN
     Indication: HYPOALBUMINAEMIA
     Dates: start: 20201216, end: 20201221
  28. ACETYLCYSTEINE. [Concomitant]
     Active Substance: ACETYLCYSTEINE
     Indication: PNEUMONIA
     Dates: start: 20201218, end: 20201223
  29. PHENOLPHTHALEIN [Concomitant]
     Active Substance: PHENOLPHTHALEIN
     Indication: CONSTIPATION
     Dates: start: 20201211, end: 20201211
  30. PEMETREXED. [Suspect]
     Active Substance: PEMETREXED
     Indication: NON-SMALL CELL LUNG CANCER STAGE IV
     Dosage: THE START DATE OF MOST RECENT DOSE OF PEMETREXED (850 MG) PRIOR TO SAE (SERIOUS ADVERSE EVENT) ONSET
     Route: 042
     Dates: start: 20201110
  31. LANSOPRAZOLE. [Concomitant]
     Active Substance: LANSOPRAZOLE
     Indication: GASTROINTESTINAL DISORDER PROPHYLAXIS
     Dates: start: 20201201, end: 20201203
  32. LANSOPRAZOLE. [Concomitant]
     Active Substance: LANSOPRAZOLE
     Dates: start: 20201109, end: 20201110
  33. DEXAMETHASONE ACETATE [Concomitant]
     Active Substance: DEXAMETHASONE ACETATE
     Route: 048
     Dates: start: 20201109, end: 20201110
  34. DEXAMETHASONE SODIUM PHOSPHATE. [Concomitant]
     Active Substance: DEXAMETHASONE SODIUM PHOSPHATE
     Indication: ANAPHYLACTIC REACTION
     Route: 042
     Dates: start: 20201214, end: 20201214
  35. FUROSEMIDE. [Concomitant]
     Active Substance: FUROSEMIDE
     Dates: start: 20201217, end: 20201217
  36. COMPOUND SODIUM CHLORIDE INJECTION [Concomitant]
     Active Substance: SODIUM CHLORIDE
     Dates: start: 20201223, end: 20201223
  37. FILGRASTIM [Concomitant]
     Active Substance: FILGRASTIM
     Dates: start: 20201126, end: 20201128
  38. DEXTROSE. [Concomitant]
     Active Substance: DEXTROSE
     Dates: start: 20201222, end: 20201222
  39. LIDOCAINE HYDROCHLORIDE. [Concomitant]
     Active Substance: LIDOCAINE HYDROCHLORIDE
     Dosage: ANTI?INFECTION
     Dates: start: 20201222, end: 20201223
  40. LIDOCAINE HYDROCHLORIDE. [Concomitant]
     Active Substance: LIDOCAINE HYDROCHLORIDE
     Dates: start: 20201217, end: 20201218
  41. AMBROXOL HYDROCHLORIDE [Concomitant]
     Active Substance: AMBROXOL HYDROCHLORIDE
     Indication: PNEUMONIA
     Dates: start: 20201218, end: 20201223
  42. CARBOPLATIN. [Suspect]
     Active Substance: CARBOPLATIN
     Indication: NON-SMALL CELL LUNG CANCER STAGE IV
     Dosage: DOSE: AUC OF 6 MG/ML/MIN?THE START DATE OF MOST RECENT DOSE OF CARBOPATIN (500 MG) PRIOR TO SAE (SER
     Route: 042
     Dates: start: 20201110
  43. DEXTROSE;SODIUM CHLORIDE [Concomitant]
     Active Substance: DEXTROSE\SODIUM CHLORIDE
     Indication: SUPPLEMENTATION THERAPY
     Dates: start: 20201210, end: 20201213
  44. VITAMINE C [Concomitant]
     Active Substance: ASCORBIC ACID
     Indication: SUPPLEMENTATION THERAPY
     Dates: start: 20201210, end: 20201213
  45. FILGRASTIM [Concomitant]
     Active Substance: FILGRASTIM
     Indication: LEUKOPENIA
     Dates: start: 20201126, end: 20201128
  46. SPIRONOLACTONE. [Concomitant]
     Active Substance: SPIRONOLACTONE
     Indication: POLYURIA
     Dates: start: 20201217, end: 20201221
  47. MEGESTROL ACETATE. [Concomitant]
     Active Substance: MEGESTROL ACETATE
     Dates: start: 20201217, end: 20201223
  48. BEVACIZUMAB. [Suspect]
     Active Substance: BEVACIZUMAB
     Indication: NON-SMALL CELL LUNG CANCER STAGE IV
     Dosage: THE START DATE OF MOST RECENT DOSE OF BEVACIZUMAB (937.5 MG) PRIOR TO SAE (SERIOUS ADVERSE EVENT) ON
     Route: 042
     Dates: start: 20201110
  49. PALONOSETRON HYDROCHLORIDE. [Concomitant]
     Active Substance: PALONOSETRON HYDROCHLORIDE
     Indication: VOMITING
     Dates: start: 20201202, end: 20201203
  50. DEXAMETHASONE ACETATE [Concomitant]
     Active Substance: DEXAMETHASONE ACETATE
     Indication: ANAPHYLACTIC REACTION
     Route: 048
     Dates: start: 20201201, end: 20201204
  51. METOCLOPRAMIDE HYDROCLORIDE [Concomitant]
     Indication: HICCUPS
     Dates: start: 20201202, end: 20201202
  52. POTASSIUM CHLORIDE. [Concomitant]
     Active Substance: POTASSIUM CHLORIDE
     Dates: start: 20201217, end: 20201219
  53. POTASSIUM CHLORIDE. [Concomitant]
     Active Substance: POTASSIUM CHLORIDE
     Dates: start: 20201219, end: 20201223
  54. CALCIUM GLUCONATE. [Concomitant]
     Active Substance: CALCIUM GLUCONATE
     Indication: SUPPLEMENTATION THERAPY
     Dates: start: 20201214, end: 20201216
  55. FILGRASTIM [Concomitant]
     Active Substance: FILGRASTIM
     Dates: start: 20201210, end: 20201213
  56. MAGNESIUM SULFATE. [Concomitant]
     Active Substance: MAGNESIUM SULFATE
     Indication: CHOLECYSTITIS
     Dates: start: 20201223, end: 20201223
  57. PANTOPRAZOLE [Concomitant]
     Active Substance: PANTOPRAZOLE
     Dosage: PROTECT GASTRIC MUCOSA
     Dates: start: 20201210, end: 20201213
  58. DEXAMETHASONE SODIUM PHOSPHATE. [Concomitant]
     Active Substance: DEXAMETHASONE SODIUM PHOSPHATE
     Dates: start: 20201217, end: 20201218
  59. DEXAMETHASONE SODIUM PHOSPHATE. [Concomitant]
     Active Substance: DEXAMETHASONE SODIUM PHOSPHATE
     Dates: start: 20201222, end: 20201223
  60. IMIPENEM AND CILASTATIN SODIUM [Concomitant]
     Active Substance: CILASTATIN SODIUM\IMIPENEM
     Indication: INFECTION
     Dates: start: 20201215, end: 20201223
  61. POTASSIUM CHLORIDE. [Concomitant]
     Active Substance: POTASSIUM CHLORIDE
     Indication: HYPOKALAEMIA
     Dates: start: 20201217, end: 20201217
  62. POTASSIUM CHLORIDE. [Concomitant]
     Active Substance: POTASSIUM CHLORIDE
     Dates: start: 20201219, end: 20201221
  63. DEXTROSE;SODIUM CHLORIDE [Concomitant]
     Active Substance: DEXTROSE\SODIUM CHLORIDE
     Dates: start: 20201219, end: 20201223
  64. FILGRASTIM [Concomitant]
     Active Substance: FILGRASTIM
     Dates: start: 20201126, end: 20201126
  65. SHENG XUE BAO [Concomitant]
     Indication: ANAEMIA
     Dates: start: 20201210, end: 20201210
  66. DEXTROSE. [Concomitant]
     Active Substance: DEXTROSE
     Indication: HYPERNATRAEMIA
     Dates: start: 20201215, end: 20201217
  67. VANCOMYCIN HCL [Concomitant]
     Active Substance: VANCOMYCIN HYDROCHLORIDE
     Dates: start: 20201215, end: 20201223
  68. BUCINNAZINE HYDROCHLORIDE [Concomitant]
     Indication: CHOLECYSTITIS
     Dates: start: 20201223, end: 20201223
  69. TERBUTALINE SULFATE. [Concomitant]
     Active Substance: TERBUTALINE SULFATE
     Indication: PRODUCTIVE COUGH
     Dates: start: 20201212, end: 20201213
  70. DEXAMETHASONE SODIUM PHOSPHATE. [Concomitant]
     Active Substance: DEXAMETHASONE SODIUM PHOSPHATE
     Dates: start: 20201215, end: 20201215
  71. DEXAMETHASONE SODIUM PHOSPHATE. [Concomitant]
     Active Substance: DEXAMETHASONE SODIUM PHOSPHATE
     Dates: start: 20201218, end: 20201218
  72. FUROSEMIDE. [Concomitant]
     Active Substance: FUROSEMIDE
     Indication: POLYURIA
     Dates: start: 20201215, end: 20201215
  73. LIDOCAINE HYDROCHLORIDE. [Concomitant]
     Active Substance: LIDOCAINE HYDROCHLORIDE
     Dates: start: 20201218, end: 20201218

REACTIONS (4)
  - Cardio-respiratory arrest [Fatal]
  - Febrile neutropenia [Recovered/Resolved]
  - Thrombocytopenia [Recovered/Resolved]
  - Necrotic lymphadenopathy [Recovering/Resolving]

NARRATIVE: CASE EVENT DATE: 20201210
